FAERS Safety Report 9062795 (Version 2)
Quarter: 2013Q2

REPORT INFORMATION
  Report Type: Spontaneous
  Country: NO (occurrence: NO)
  Receive Date: 20130128
  Receipt Date: 20130407
  Transmission Date: 20140414
  Serious: Yes (Hospitalization)
  Sender: FDA-Public Use
  Company Number: NO-BRISTOL-MYERS SQUIBB COMPANY-17311788

PATIENT
  Age: 69 Year
  Sex: Female

DRUGS (14)
  1. GLUCOPHAGE TABS 1000 MG [Suspect]
     Indication: TYPE 1 DIABETES MELLITUS
     Route: 048
     Dates: end: 20121217
  2. SELO-ZOK TABS [Concomitant]
     Route: 048
  3. STILNOCT [Concomitant]
     Dosage: TABS
     Route: 048
  4. SERETIDE [Concomitant]
     Route: 045
  5. PARALGIN FORTE [Concomitant]
     Dosage: TABS
     Route: 048
  6. VENTOLIN INHALER [Concomitant]
     Route: 045
  7. ACTIVELLE [Concomitant]
     Dosage: TABS
     Route: 048
  8. FURIX [Concomitant]
     Dosage: TABS
     Route: 048
  9. POLARAMIN [Concomitant]
     Route: 048
  10. MUCOMYST TABS [Concomitant]
     Route: 048
  11. INSULATARD FLEXPEN [Concomitant]
     Indication: DIABETES MELLITUS
     Route: 058
  12. ZYLORIC [Concomitant]
     Route: 048
  13. LORATADINE [Concomitant]
     Route: 048
  14. SIMVASTATINE [Concomitant]
     Route: 048

REACTIONS (1)
  - Renal failure acute [Recovering/Resolving]
